FAERS Safety Report 12329763 (Version 7)
Quarter: 2020Q3

REPORT INFORMATION
  Report Type: Report from Study
  Country: CA (occurrence: CA)
  Receive Date: 20160503
  Receipt Date: 20200910
  Transmission Date: 20201102
  Serious: Yes (Hospitalization, Other)
  Sender: FDA-Public Use
  Company Number: CA-TAKEDA-2016TUS007465

PATIENT
  Age: 32 Year
  Sex: Female

DRUGS (14)
  1. VEDOLIZUMAB [Suspect]
     Active Substance: VEDOLIZUMAB
     Dosage: 300 MILLIGRAM
     Route: 042
  2. VEDOLIZUMAB [Suspect]
     Active Substance: VEDOLIZUMAB
     Dosage: 300 MILLIGRAM
     Route: 042
  3. PREDNISONE. [Concomitant]
     Active Substance: PREDNISONE
     Dosage: UNK
  4. CIPRALEX [Concomitant]
     Active Substance: ESCITALOPRAM OXALATE
     Dosage: UNK
  5. PANTOLOC [Suspect]
     Active Substance: PANTOPRAZOLE SODIUM
     Indication: PRODUCT USED FOR UNKNOWN INDICATION
     Dosage: UNK UNK, QD
     Route: 048
  6. DICYCLOMINE HYDROCHLORIDE. [Concomitant]
     Active Substance: DICYCLOMINE HYDROCHLORIDE
     Dosage: UNK
  7. VEDOLIZUMAB [Suspect]
     Active Substance: VEDOLIZUMAB
     Indication: COLITIS ULCERATIVE
     Dosage: 300 MILLIGRAM
     Route: 042
     Dates: start: 20151001
  8. NUVARING [Concomitant]
     Active Substance: ETHINYL ESTRADIOL\ETONOGESTREL
     Dosage: UNK
  9. CALCIUM W/VITAMIN D NOS [Concomitant]
     Active Substance: CALCIUM\VITAMIN D
     Dosage: UNK
  10. VEDOLIZUMAB [Suspect]
     Active Substance: VEDOLIZUMAB
     Dosage: 300 MILLIGRAM
     Route: 042
  11. METHOTREXATE. [Suspect]
     Active Substance: METHOTREXATE
     Indication: PRODUCT USED FOR UNKNOWN INDICATION
     Dosage: 2.5 MILLIGRAM, 1/WEEK
     Route: 065
  12. SALOFALK                           /00000301/ [Concomitant]
     Active Substance: AMINOSALICYLIC ACID
     Dosage: UNK
  13. HYDROCHLOROTHIAZIDE. [Concomitant]
     Active Substance: HYDROCHLOROTHIAZIDE
     Dosage: UNK
  14. VEDOLIZUMAB [Suspect]
     Active Substance: VEDOLIZUMAB
     Dosage: 300 MILLIGRAM
     Route: 042

REACTIONS (18)
  - Influenza [Recovered/Resolved]
  - Pharyngitis streptococcal [Recovered/Resolved]
  - Immunology test abnormal [Unknown]
  - Haematemesis [Unknown]
  - Abdominal pain [Unknown]
  - Fatigue [Not Recovered/Not Resolved]
  - Hypothermia [Unknown]
  - Diarrhoea [Unknown]
  - Paraesthesia [Unknown]
  - Hot flush [Unknown]
  - Viral infection [Unknown]
  - Abdominal distension [Unknown]
  - Frequent bowel movements [Unknown]
  - Cough [Unknown]
  - Asthenia [Unknown]
  - Oropharyngeal pain [Unknown]
  - Neck pain [Unknown]
  - Tremor [Unknown]

NARRATIVE: CASE EVENT DATE: 2016
